FAERS Safety Report 18660250 (Version 1)
Quarter: 2020Q4

REPORT INFORMATION
  Report Type: Report from Study
  Country: DE (occurrence: DE)
  Receive Date: 20201223
  Receipt Date: 20201223
  Transmission Date: 20210114
  Serious: Yes (Hospitalization)
  Sender: FDA-Public Use
  Company Number: NVSC2020DE338954

PATIENT
  Sex: Female
  Weight: 56 kg

DRUGS (15)
  1. COSENTYX [Suspect]
     Active Substance: SECUKINUMAB
     Dosage: 150 MG, QW
     Route: 065
     Dates: start: 20201027, end: 20201027
  2. COSENTYX [Suspect]
     Active Substance: SECUKINUMAB
     Dosage: 150 MG, QW
     Route: 065
     Dates: start: 20201020, end: 20201020
  3. ELIQUIS [Concomitant]
     Active Substance: APIXABAN
     Indication: PROPHYLAXIS
     Dosage: 1 DF, BID (ONCE IN THE MORNING AND ONCE IN THE EVENING)
     Route: 048
     Dates: start: 20180314
  4. LAVETA [Concomitant]
     Indication: PROPHYLAXIS
     Dosage: UNK UNK, QD (ONE TABLESPOON IN THE MORNING)
     Route: 048
     Dates: start: 20180128
  5. TORASEMIDE [Concomitant]
     Active Substance: TORSEMIDE
     Indication: CARDIAC FAILURE
     Dosage: 1 DF, QD (ONCE IN THE MORNING)
     Route: 048
     Dates: start: 20180626
  6. COSENTYX [Suspect]
     Active Substance: SECUKINUMAB
     Dosage: UNK
     Route: 065
     Dates: end: 2020
  7. GABAPENTIN. [Concomitant]
     Active Substance: GABAPENTIN
     Indication: PERIPHERAL ARTERIAL OCCLUSIVE DISEASE
     Dosage: 1 DF, QD (ONCE IN THE EVENING)
     Route: 048
     Dates: start: 20170606
  8. HYLO-CARE [Concomitant]
     Indication: PROPHYLAXIS
     Dosage: UNK UNK, BID (ONCE IN THE MORNING, ONCE AT NOON, ONCE IN THE EVENING)
     Route: 061
     Dates: start: 201904
  9. COSENTYX [Suspect]
     Active Substance: SECUKINUMAB
     Dosage: 150 MG, QW
     Route: 065
     Dates: start: 20201006, end: 20201006
  10. DIGITOXIN [Concomitant]
     Active Substance: DIGITOXIN
     Indication: PROPHYLAXIS
     Dosage: 1 DF, QD( ONCE IN THE MORNING)
     Route: 048
     Dates: start: 20180314
  11. COSENTYX [Suspect]
     Active Substance: SECUKINUMAB
     Indication: PSORIATIC ARTHROPATHY
     Dosage: 150 MG, QW
     Route: 065
     Dates: start: 20200929, end: 20200929
  12. OMEPRAZOLE. [Concomitant]
     Active Substance: OMEPRAZOLE
     Indication: PROPHYLAXIS
     Dosage: 1 DF, PRN (ONCE IN THE MORNING AS NEEDED)
     Route: 048
     Dates: start: 20200921
  13. DAIVOBET [Concomitant]
     Active Substance: BETAMETHASONE DIPROPIONATE\CALCIPOTRIENE
     Indication: PSORIASIS
     Dosage: UNK UNK, OTHER (TWICE PER WEEK ON THE SKIN REGION)
     Route: 061
     Dates: start: 20130121
  14. COSENTYX [Suspect]
     Active Substance: SECUKINUMAB
     Dosage: 150 MG, QW
     Route: 065
     Dates: start: 20201013, end: 20201013
  15. DEKRISTOL [Concomitant]
     Active Substance: CHOLECALCIFEROL
     Indication: PROPHYLAXIS
     Dosage: 20000 IU, Q2W
     Route: 048
     Dates: start: 20181205

REACTIONS (1)
  - Vascular skin disorder [Recovered/Resolved]

NARRATIVE: CASE EVENT DATE: 20201128
